FAERS Safety Report 23779695 (Version 1)
Quarter: 2024Q2

REPORT INFORMATION
  Report Type: Spontaneous
  Country: FR (occurrence: FR)
  Receive Date: 20240424
  Receipt Date: 20240424
  Transmission Date: 20240715
  Serious: Yes (Other)
  Sender: FDA-Public Use
  Company Number: None

PATIENT

DRUGS (1)
  1. CYCLOPENTOLATE [Suspect]
     Active Substance: CYCLOPENTOLATE
     Indication: Fundoscopy
     Dosage: 1 DROP IN EACH EYE TWICE AT 5 MIN INTERVALS
     Route: 047
     Dates: start: 20240403, end: 20240403

REACTIONS (1)
  - Anticholinergic syndrome [Recovered/Resolved]

NARRATIVE: CASE EVENT DATE: 20240403
